FAERS Safety Report 4765543-X (Version None)
Quarter: 2005Q3

REPORT INFORMATION
  Report Type: 
  Country: None (occurrence: None)
  Receive Date: 20050906
  Receipt Date: 20050819
  Transmission Date: 20060218
  Serious: Yes (Hospitalization)
  Sender: FDA-Public Use
  Company Number: DE_050816754

PATIENT
  Sex: Female

DRUGS (1)
  1. ZYPREXA-ORAL (OLANZAINE) (OLANZAPINE) [Suspect]

REACTIONS (1)
  - ILEUS PARALYTIC [None]
